FAERS Safety Report 24210946 (Version 2)
Quarter: 2024Q3

REPORT INFORMATION
  Report Type: Spontaneous
  Country: GB (occurrence: GB)
  Receive Date: 20240814
  Receipt Date: 20240828
  Transmission Date: 20241017
  Serious: Yes (Other)
  Sender: NOVARTIS
  Company Number: GB-002147023-NVSC2024GB164528

PATIENT
  Age: 52 Year
  Sex: Female

DRUGS (2)
  1. KESIMPTA [Suspect]
     Active Substance: OFATUMUMAB
     Indication: Relapsing-remitting multiple sclerosis
     Dosage: UNK
     Route: 065
     Dates: start: 202208
  2. KESIMPTA [Suspect]
     Active Substance: OFATUMUMAB
     Indication: Multiple sclerosis

REACTIONS (4)
  - Invasive ductal breast carcinoma [Unknown]
  - Hormone receptor positive breast cancer [Unknown]
  - HER2 negative breast cancer [Unknown]
  - Breast mass [Unknown]

NARRATIVE: CASE EVENT DATE: 20240301
